FAERS Safety Report 6882560-4 (Version None)
Quarter: 2010Q3

REPORT INFORMATION
  Report Type: 
  Country: None (occurrence: None)
  Receive Date: 20100729
  Receipt Date: 20100720
  Transmission Date: 20110219
  Serious: Yes (Other)
  Sender: FDA-Public Use
  Company Number: US-JNJFOC-20100707110

PATIENT
  Sex: Male
  Weight: 108.86 kg

DRUGS (6)
  1. DURAGESIC-100 [Suspect]
     Indication: PRODUCT USED FOR UNKNOWN INDICATION
     Route: 062
  2. DURAGESIC-100 [Suspect]
     Route: 062
  3. FENTANYL-100 [Suspect]
     Indication: PAIN
     Route: 062
  4. ZOLOFT [Concomitant]
     Indication: DEPRESSION
     Route: 048
  5. AVANDIA [Concomitant]
     Indication: DIABETES MELLITUS
     Route: 048
  6. BLOOD PRESSURE MEDICATION NOS [Concomitant]
     Indication: HYPERTENSION
     Route: 065

REACTIONS (3)
  - ADVERSE REACTION [None]
  - BLOOD GLUCOSE ABNORMAL [None]
  - NAUSEA [None]
